FAERS Safety Report 7170005-9 (Version None)
Quarter: 2010Q4

REPORT INFORMATION
  Report Type: 
  Country: None (occurrence: None)
  Receive Date: 20101217
  Receipt Date: 20101215
  Transmission Date: 20110411
  Serious: Yes (Life-Threatening, Hospitalization)
  Sender: FDA-Public Use
  Company Number: DE-TEVA-255529GER

PATIENT
  Sex: Male

DRUGS (8)
  1. PREDNISOLONE [Suspect]
     Indication: PROSTATE CANCER METASTATIC
     Route: 048
     Dates: start: 20100505
  2. PREDNISOLONE [Suspect]
     Route: 048
     Dates: start: 20081118
  3. ABIRATERONE ACETATE OR PLACEBO [Suspect]
     Indication: PROSTATE CANCER METASTATIC
     Route: 048
     Dates: start: 20100505
  4. ABIRATERONE ACETATE OR PLACEBO [Suspect]
     Route: 048
     Dates: start: 20081219
  5. ZOLEDRONIC ACID [Concomitant]
     Indication: BONE DISORDER
     Dates: start: 20100421
  6. LEUPROLIDE ACETATE [Concomitant]
     Indication: HORMONE THERAPY
     Dates: start: 20091222
  7. LEUPROLIDE ACETATE [Concomitant]
     Indication: ANTIOESTROGEN THERAPY
  8. METAMIZOLE SODIUM [Concomitant]
     Indication: PAIN
     Dosage: 40 DROPS, 1 IN 1 AS NECESSARY
     Route: 048
     Dates: start: 20100811

REACTIONS (2)
  - ANAEMIA [None]
  - DYSPNOEA [None]
